FAERS Safety Report 19648262 (Version 2)
Quarter: 2021Q3

REPORT INFORMATION
  Report Type: Spontaneous
  Country: US (occurrence: US)
  Receive Date: 20210803
  Receipt Date: 20210901
  Transmission Date: 20211014
  Serious: No
  Sender: FDA-Public Use
  Company Number: US-KALEO, INC.-2021KL000089

PATIENT
  Age: 10 Year
  Sex: Male

DRUGS (1)
  1. AUVI?Q [Suspect]
     Active Substance: EPINEPHRINE

REACTIONS (1)
  - Device leakage [Not Recovered/Not Resolved]
